FAERS Safety Report 18638605 (Version 2)
Quarter: 2020Q4

REPORT INFORMATION
  Report Type: Spontaneous
  Country: US (occurrence: US)
  Receive Date: 20201218
  Receipt Date: 20201228
  Transmission Date: 20210114
  Serious: No
  Sender: FDA-Public Use
  Company Number: US-PFIZER INC-2020222530

PATIENT
  Age: 66 Year
  Sex: Female
  Weight: 80.74 kg

DRUGS (3)
  1. XELJANZ XR [Suspect]
     Active Substance: TOFACITINIB CITRATE
     Indication: OSTEOARTHRITIS
     Dosage: 11 MG, ALTERNATE DAY
  2. XELJANZ XR [Suspect]
     Active Substance: TOFACITINIB CITRATE
     Indication: RHEUMATOID ARTHRITIS
     Dosage: 11 MG, 1X/DAY
     Route: 048
  3. XELJANZ XR [Suspect]
     Active Substance: TOFACITINIB CITRATE
     Dosage: 11 MG, EVERY 3 DAYS

REACTIONS (3)
  - Malaise [Unknown]
  - COVID-19 [Unknown]
  - Intentional product misuse [Unknown]
